FAERS Safety Report 6042312-4 (Version None)
Quarter: 2009Q1

REPORT INFORMATION
  Report Type: 
  Country: None (occurrence: None)
  Receive Date: 20090116
  Receipt Date: 20090107
  Transmission Date: 20090719
  Serious: Yes (Other)
  Sender: FDA-Public Use
  Company Number: JP-PFIZER INC-2009154897

PATIENT

DRUGS (1)
  1. SOLANAX [Suspect]
     Indication: OBSESSIVE-COMPULSIVE DISORDER
     Dosage: UNK
     Route: 048

REACTIONS (11)
  - ANXIETY [None]
  - ASTHENIA [None]
  - FEELING ABNORMAL [None]
  - HEADACHE [None]
  - HYPERVENTILATION [None]
  - INSOMNIA [None]
  - NAUSEA [None]
  - OBSESSIVE-COMPULSIVE DISORDER [None]
  - POLLAKIURIA [None]
  - RESTLESSNESS [None]
  - SOMNOLENCE [None]
